FAERS Safety Report 9768352 (Version 3)
Quarter: 2015Q3

REPORT INFORMATION
  Report Type: Spontaneous
  Country: US (occurrence: US)
  Receive Date: 20131217
  Receipt Date: 20150817
  Transmission Date: 20151125
  Serious: No
  Sender: FDA-Public Use
  Company Number: US-GILEAD-2013-0090078

PATIENT
  Age: 79 Year
  Sex: Female
  Weight: 72 kg

DRUGS (23)
  1. TYLENOL [Concomitant]
     Active Substance: ACETAMINOPHEN
     Dosage: 650 MG, QID
     Route: 048
  2. PRILOSEC [Concomitant]
     Active Substance: OMEPRAZOLE MAGNESIUM
     Dosage: 40 MG, BID
     Route: 048
  3. AMBIEN [Concomitant]
     Active Substance: ZOLPIDEM TARTRATE
     Dosage: 5 MG, PRN
     Route: 048
     Dates: start: 20120619
  4. REVATIO [Concomitant]
     Active Substance: SILDENAFIL CITRATE
     Dosage: 1 DF, TID
     Route: 048
     Dates: start: 20130604
  5. TRICOR                             /00499301/ [Concomitant]
     Dosage: 145 MG, QD
     Route: 048
  6. LASIX [Concomitant]
     Active Substance: FUROSEMIDE
     Dosage: 1.5 DF, QD
     Route: 048
     Dates: start: 20130605
  7. GARAMYCIN [Concomitant]
     Active Substance: GENTAMICIN SULFATE
     Dosage: UNK, Q4HR
     Route: 047
     Dates: start: 20130326
  8. LISINOPRIL. [Concomitant]
     Active Substance: LISINOPRIL
     Dosage: 1 DF, QD
     Route: 048
     Dates: start: 20130830
  9. LETAIRIS [Suspect]
     Active Substance: AMBRISENTAN
     Indication: PULMONARY HYPERTENSION
     Dosage: 10 MG, UNK
     Route: 065
     Dates: start: 20131119
  10. LANTUS [Concomitant]
     Active Substance: INSULIN GLARGINE
     Dosage: 28 IU, QD
     Route: 058
  11. ARANESP [Concomitant]
     Active Substance: DARBEPOETIN ALFA
     Dosage: 25 ?G, Q1WK
     Route: 058
  12. LIDODERM [Concomitant]
     Active Substance: LIDOCAINE
     Dosage: 1 DF, BID
     Route: 062
  13. OXY.IR [Concomitant]
     Dosage: 5 MG, QID
     Route: 048
  14. LETAIRIS [Suspect]
     Active Substance: AMBRISENTAN
     Indication: DIASTOLIC DYSFUNCTION
  15. ASPIRIN. [Concomitant]
     Active Substance: ASPIRIN
     Dosage: 81 MG, QD
     Route: 048
  16. CARDIZEM [Concomitant]
     Active Substance: DILTIAZEM HYDROCHLORIDE
     Dosage: 240 MG, QD
     Route: 048
  17. PROZAC [Concomitant]
     Active Substance: FLUOXETINE HYDROCHLORIDE
     Dosage: 1 DF, QD
     Route: 048
     Dates: start: 20131001
  18. LORCET [Concomitant]
     Active Substance: ACETAMINOPHEN\HYDROCODONE BITARTRATE
     Dosage: 1 DF, QD
     Route: 048
  19. MIRALAX [Concomitant]
     Active Substance: POLYETHYLENE GLYCOL 3350
     Dosage: 17 G, QD
     Route: 048
  20. ERGOCALCIFEROL. [Concomitant]
     Active Substance: ERGOCALCIFEROL
     Dosage: 1 DF, Q1WK
     Route: 048
     Dates: start: 20130409
  21. OXYGEN. [Concomitant]
     Active Substance: OXYGEN
     Route: 055
  22. COLACE [Concomitant]
     Active Substance: DOCUSATE SODIUM
     Dosage: 200 MG, QD
     Route: 048
  23. NIASPAN [Concomitant]
     Active Substance: NIACIN
     Dosage: 2000 MG, QD
     Route: 048

REACTIONS (1)
  - Abdominal discomfort [Recovered/Resolved]
